FAERS Safety Report 13072984 (Version 2)
Quarter: 2017Q1

REPORT INFORMATION
  Report Type: Spontaneous
  Country: US (occurrence: US)
  Receive Date: 20161229
  Receipt Date: 20170104
  Transmission Date: 20170428
  Serious: Yes (Other)
  Sender: FDA-Public Use
  Company Number: US-CELGENEUS-USA-2016126901

PATIENT
  Sex: Female
  Weight: 62.2 kg

DRUGS (1)
  1. REVLIMID [Suspect]
     Active Substance: LENALIDOMIDE
     Indication: PLASMA CELL MYELOMA
     Route: 048
     Dates: start: 20150621, end: 20161218

REACTIONS (8)
  - Plasma cell myeloma [Unknown]
  - Asthma [Unknown]
  - Abasia [Unknown]
  - Nasopharyngitis [Unknown]
  - Pain [Unknown]
  - Dysphonia [Unknown]
  - Muscular weakness [Unknown]
  - Muscle spasms [Unknown]
